FAERS Safety Report 18327666 (Version 5)
Quarter: 2022Q1

REPORT INFORMATION
  Report Type: Report from Study
  Country: US (occurrence: None)
  Receive Date: 20200930
  Receipt Date: 20220221
  Transmission Date: 20220423
  Serious: Yes (Hospitalization)
  Sender: FDA-Public Use
  Company Number: US-ROCHE-2686439

PATIENT
  Age: 71 Year
  Sex: Male
  Weight: 88.530 kg

DRUGS (29)
  1. VENETOCLAX [Suspect]
     Active Substance: VENETOCLAX
     Indication: Chronic lymphocytic leukaemia
     Route: 048
     Dates: start: 20131105, end: 20131105
  2. VENETOCLAX [Suspect]
     Active Substance: VENETOCLAX
     Route: 048
     Dates: start: 20131106, end: 20131111
  3. VENETOCLAX [Suspect]
     Active Substance: VENETOCLAX
     Route: 048
     Dates: start: 20131112, end: 20131118
  4. VENETOCLAX [Suspect]
     Active Substance: VENETOCLAX
     Route: 048
     Dates: start: 20131119, end: 20131125
  5. VENETOCLAX [Suspect]
     Active Substance: VENETOCLAX
     Route: 048
     Dates: start: 20131126, end: 20150209
  6. VENETOCLAX [Suspect]
     Active Substance: VENETOCLAX
     Dosage: ON 20/SEP/2020, HE RECEIVED MOST RECENT DOSE OF VENETOCLAX.?UNK - ONGOING
     Route: 048
     Dates: start: 20150210
  7. RITUXIMAB [Suspect]
     Active Substance: RITUXIMAB
     Indication: Chronic lymphocytic leukaemia
     Route: 042
     Dates: start: 20131203, end: 20131203
  8. RITUXIMAB [Suspect]
     Active Substance: RITUXIMAB
     Dosage: ON 29/APR/2014, SHE RECEIVED MOST RECENT DOSE OF RITUXIMAB.?FREQUENCY: 1 IN 1 M
     Route: 042
     Dates: start: 20131230
  9. ALLOPURINOL [Concomitant]
     Active Substance: ALLOPURINOL
     Route: 048
     Dates: start: 20131024, end: 20131230
  10. ACYCLOVIR [Concomitant]
     Active Substance: ACYCLOVIR
     Route: 048
     Dates: start: 20130422
  11. MONTELUKAST [Concomitant]
     Active Substance: MONTELUKAST SODIUM
     Indication: Asthma
     Route: 048
     Dates: start: 20100916
  12. SIMVASTATIN [Concomitant]
     Active Substance: SIMVASTATIN
     Indication: Hypercholesterolaemia
     Route: 048
     Dates: start: 20120103, end: 20131103
  13. SIMVASTATIN [Concomitant]
     Active Substance: SIMVASTATIN
     Route: 048
     Dates: start: 20131104, end: 20131107
  14. SIMVASTATIN [Concomitant]
     Active Substance: SIMVASTATIN
     Route: 048
     Dates: start: 20131108
  15. CYANOCOBALAMIN [Concomitant]
     Active Substance: CYANOCOBALAMIN
     Dosage: 1000 MCG
     Route: 048
     Dates: start: 20161019
  16. CLOBETASOL [Concomitant]
     Active Substance: CLOBETASOL
     Indication: Skin lesion
     Dates: start: 20200629
  17. OMEPRAZOLE [Concomitant]
     Active Substance: OMEPRAZOLE
     Indication: Dysphonia
     Route: 048
     Dates: start: 20200812
  18. TAMIFLU [Concomitant]
     Active Substance: OSELTAMIVIR PHOSPHATE
     Indication: Influenza
     Route: 048
     Dates: start: 20200320, end: 20200325
  19. TYLENOL [Concomitant]
     Active Substance: ACETAMINOPHEN
     Dates: start: 20200908, end: 20200908
  20. DOXYCYCLINE HYCLATE [Concomitant]
     Active Substance: DOXYCYCLINE HYCLATE
     Indication: Pneumonia
     Route: 048
     Dates: start: 20200917, end: 20200920
  21. AZITHROMYCIN [Concomitant]
     Active Substance: AZITHROMYCIN
     Indication: Pneumonia
     Route: 042
     Dates: start: 20200921
  22. CEFEPIME [Concomitant]
     Active Substance: CEFEPIME HYDROCHLORIDE
     Dosage: ONCE@200ML/HR OVER 30 MINS (2000 MG)
     Route: 042
     Dates: start: 20200921
  23. POTASSIUM CHLORIDE [Concomitant]
     Active Substance: POTASSIUM CHLORIDE
     Indication: Hypokalaemia
     Route: 048
     Dates: start: 20200921
  24. SODIUM CHLORIDE [Concomitant]
     Active Substance: SODIUM CHLORIDE
     Dosage: ONCE @ 923.1 ML/HR OVER 65 MINS (IV BOLUS)
     Route: 042
     Dates: start: 20200921
  25. NEUPOGEN [Concomitant]
     Active Substance: FILGRASTIM
     Dosage: 480 MCG,ONCE
     Route: 058
     Dates: start: 20131104
  26. NEULASTA [Concomitant]
     Active Substance: PEGFILGRASTIM
     Dates: start: 20131126, end: 20150429
  27. COVID-19 VACCINE [Concomitant]
     Indication: COVID-19 prophylaxis
     Dates: start: 20200213, end: 20200213
  28. COVID-19 VACCINE [Concomitant]
     Dates: start: 20210306, end: 20210306
  29. COVID-19 VACCINE [Concomitant]
     Dates: start: 20210910, end: 20210910

REACTIONS (1)
  - COVID-19 [Recovered/Resolved]

NARRATIVE: CASE EVENT DATE: 20200921
